FAERS Safety Report 21241183 (Version 1)
Quarter: 2022Q3

REPORT INFORMATION
  Report Type: Spontaneous
  Country: US (occurrence: US)
  Receive Date: 20220823
  Receipt Date: 20220823
  Transmission Date: 20221026
  Serious: Yes (Life-Threatening, Hospitalization, Other)
  Sender: FDA-Public Use
  Company Number: US-SUN PHARMACEUTICAL INDUSTRIES LTD-2022R1-349530

PATIENT
  Age: 22 Year
  Sex: Female

DRUGS (1)
  1. BACLOFEN [Suspect]
     Active Substance: BACLOFEN
     Indication: Product used for unknown indication
     Dosage: UNK
     Route: 037

REACTIONS (6)
  - Drug withdrawal syndrome [Unknown]
  - Autonomic nervous system imbalance [Unknown]
  - Condition aggravated [Unknown]
  - Tachycardia [Unknown]
  - Tachypnoea [Unknown]
  - Mental status changes [Not Recovered/Not Resolved]
